FAERS Safety Report 7034767-3 (Version None)
Quarter: 2010Q4

REPORT INFORMATION
  Report Type: 
  Country: None (occurrence: None)
  Receive Date: 20101008
  Receipt Date: 20101002
  Transmission Date: 20110411
  Serious: Yes (Other)
  Sender: FDA-Public Use
  Company Number: PHHY2010US64827

PATIENT
  Sex: Male

DRUGS (3)
  1. EXTAVIA [Suspect]
     Indication: MULTIPLE SCLEROSIS
     Dosage: 0.0625 MG, QOD
     Route: 058
     Dates: start: 20100917
  2. STEROIDS NOS [Concomitant]
     Indication: MULTIPLE SCLEROSIS RELAPSE
     Dosage: UNK
  3. PREDNISONE [Concomitant]
     Dosage: UNK

REACTIONS (4)
  - DEPRESSED MOOD [None]
  - IMPAIRED DRIVING ABILITY [None]
  - IRRITABILITY [None]
  - VISUAL IMPAIRMENT [None]
